FAERS Safety Report 9623930 (Version 2)
Quarter: 2013Q4

REPORT INFORMATION
  Report Type: Spontaneous
  Country: IL (occurrence: IL)
  Receive Date: 20131015
  Receipt Date: 20131028
  Transmission Date: 20140711
  Serious: Yes (Death, Other)
  Sender: FDA-Public Use
  Company Number: IL-TEVA-436570ISR

PATIENT
  Age: 75 Year
  Sex: Female

DRUGS (2)
  1. METHOTREXATE [Suspect]
     Indication: RHEUMATOID ARTHRITIS
     Route: 065
  2. METHOTREXATE [Suspect]
     Indication: RHEUMATOID ARTHRITIS
     Route: 065

REACTIONS (9)
  - Multi-organ failure [Fatal]
  - Toxicity to various agents [Fatal]
  - Inappropriate schedule of drug administration [Fatal]
  - Respiratory failure [Unknown]
  - Renal failure acute [Unknown]
  - Septic shock [Unknown]
  - Mucosal inflammation [Unknown]
  - Pruritus [Unknown]
  - Abdominal pain [Unknown]
